FAERS Safety Report 5881789-1 (Version None)
Quarter: 2008Q3

REPORT INFORMATION
  Report Type: 
  Country: None (occurrence: None)
  Receive Date: 20080912
  Receipt Date: 20080711
  Transmission Date: 20090109
  Serious: No
  Sender: FDA-Public Use
  Company Number: US-ABBOTT-08P-163-0462672-00

PATIENT
  Sex: Female
  Weight: 80.812 kg

DRUGS (8)
  1. HUMIRA [Suspect]
     Indication: RHEUMATOID ARTHRITIS
     Route: 050
     Dates: start: 20030101
  2. PREDNISONE TAB [Concomitant]
     Indication: RHEUMATOID ARTHRITIS
     Dosage: 10 MG TABLETS NOW TAKING 3 EVERY DAY X3 AND TAPER
     Dates: start: 20000101
  3. HYDROCODONE BITARTRATE [Concomitant]
     Indication: PAIN
     Dosage: 10 MG THREE TIMES A DAY OR FOUR TIMES A DAY AS NEEDED
     Route: 048
     Dates: start: 20000101
  4. HYDROCODONE BITARTRATE [Concomitant]
     Indication: STRESS
  5. VITAMINS, FLAX SEED [Concomitant]
     Indication: DRUG USE FOR UNKNOWN INDICATION
     Route: 048
  6. B50, C, E, THIAMINE, B12, B6, IRON [Concomitant]
     Indication: VITAMIN SUPPLEMENTATION
     Route: 048
  7. CA [Concomitant]
     Indication: DRUG USE FOR UNKNOWN INDICATION
     Route: 048
  8. FISH OIL [Concomitant]
     Indication: DRUG USE FOR UNKNOWN INDICATION

REACTIONS (3)
  - BACK INJURY [None]
  - EMOTIONAL DISTRESS [None]
  - PAIN [None]
